FAERS Safety Report 16645301 (Version 2)
Quarter: 2020Q2

REPORT INFORMATION
  Report Type: Spontaneous
  Country: US (occurrence: US)
  Receive Date: 20190729
  Receipt Date: 20200407
  Transmission Date: 20200713
  Serious: No
  Sender: FDA-Public Use
  Company Number: US-ACTELION-A-NJ2018-171927

PATIENT
  Age: 58 Year
  Sex: Female

DRUGS (2)
  1. TADALAFIL. [Concomitant]
     Active Substance: TADALAFIL
  2. OPSUMIT [Suspect]
     Active Substance: MACITENTAN
     Indication: PULMONARY ARTERIAL HYPERTENSION
     Dosage: 10 MG, QD
     Route: 048
     Dates: start: 20180404

REACTIONS (6)
  - Peripheral swelling [Not Recovered/Not Resolved]
  - Chest pain [Unknown]
  - Product dose omission [Unknown]
  - Musculoskeletal pain [Unknown]
  - Asthma [Unknown]
  - Tendonitis [Unknown]

NARRATIVE: CASE EVENT DATE: 20180415
